FAERS Safety Report 6195797-7 (Version None)
Quarter: 2009Q2

REPORT INFORMATION
  Report Type: 
  Country: None (occurrence: None)
  Receive Date: 20090520
  Receipt Date: 20090507
  Transmission Date: 20091009
  Serious: Yes (Other)
  Sender: FDA-Public Use
  Company Number: GR-RANBAXY-2009RR-24118

PATIENT
  Sex: Female

DRUGS (2)
  1. AMIODARONE [Suspect]
  2. CLARITHROMYCIN [Suspect]

REACTIONS (2)
  - DRUG INTERACTION [None]
  - ELECTROCARDIOGRAM QT PROLONGED [None]
